FAERS Safety Report 7468401-5 (Version None)
Quarter: 2011Q2

REPORT INFORMATION
  Report Type: 
  Country: None (occurrence: None)
  Receive Date: 20110509
  Receipt Date: 20110504
  Transmission Date: 20111010
  Serious: Yes (Hospitalization)
  Sender: FDA-Public Use
  Company Number: US-B.I. PHARMACEUTICALS,INC./RIDGEFIELD-2011-BP-12371BP

PATIENT
  Sex: Female

DRUGS (3)
  1. PRADAXA [Suspect]
     Indication: ATRIAL FIBRILLATION
     Dosage: 300 MG
     Route: 048
     Dates: start: 20110307
  2. XANAX [Concomitant]
     Indication: ANXIETY
     Route: 048
  3. NEURONTIN [Concomitant]
     Indication: ANXIETY
     Route: 048

REACTIONS (3)
  - SYNCOPE [None]
  - FALL [None]
  - DIARRHOEA [None]
